FAERS Safety Report 8991342 (Version 1)
Quarter: 2012Q4

REPORT INFORMATION
  Report Type: 
  Country: US (occurrence: US)
  Receive Date: 20121230
  Receipt Date: 20121230
  Transmission Date: 20130627
  Serious: Yes (Hospitalization)
  Sender: FDA-Public Use
  Company Number: US-TEVA-377976USA

PATIENT
  Sex: Female

DRUGS (1)
  1. COPAXONE [Suspect]
     Indication: MULTIPLE SCLEROSIS
     Dates: start: 20120605

REACTIONS (5)
  - Chest pain [Unknown]
  - Pancreatitis [Unknown]
  - Hepatitis [Unknown]
  - Inflammation [Unknown]
  - Systemic lupus erythematosus [Unknown]
